FAERS Safety Report 20053827 (Version 1)
Quarter: 2021Q4

REPORT INFORMATION
  Report Type: Spontaneous
  Country: US (occurrence: US)
  Receive Date: 20211110
  Receipt Date: 20211110
  Transmission Date: 20220303
  Serious: No
  Sender: FDA-Public Use
  Company Number: US-PERRIGO-21US004450

PATIENT
  Sex: Male

DRUGS (2)
  1. FAMOTIDINE [Suspect]
     Active Substance: FAMOTIDINE
     Indication: Dyspepsia
     Dosage: UNKNOWN, UNKNOWN
     Route: 048
     Dates: start: 202103, end: 202103
  2. FAMOTIDINE [Suspect]
     Active Substance: FAMOTIDINE
     Dosage: UNKNOWN, UNKNOWN
     Route: 048
     Dates: start: 202103, end: 202103

REACTIONS (1)
  - Dizziness [Unknown]

NARRATIVE: CASE EVENT DATE: 20210301
